FAERS Safety Report 6404659-9 (Version None)
Quarter: 2009Q4

REPORT INFORMATION
  Report Type: 
  Country: None (occurrence: None)
  Receive Date: 20091016
  Receipt Date: 20091005
  Transmission Date: 20100525
  Serious: Yes (Death)
  Sender: FDA-Public Use
  Company Number: US-PFIZER INC-2009271271

PATIENT
  Sex: Female
  Weight: 61.678 kg

DRUGS (4)
  1. GEODON [Suspect]
     Indication: AFFECTIVE DISORDER
     Dosage: UNK
     Dates: start: 20061030, end: 20090616
  2. GARDASIL [Concomitant]
  3. ADDERALL XR 10 [Concomitant]
  4. LEVOTHYROXINE SODIUM [Concomitant]

REACTIONS (3)
  - CARDIAC DISORDER [None]
  - CARDIOMYOPATHY [None]
  - RIGHT VENTRICULAR DYSFUNCTION [None]
